FAERS Safety Report 5515428-6 (Version None)
Quarter: 2007Q4

REPORT INFORMATION
  Report Type: 
  Country: None (occurrence: None)
  Receive Date: 20071113
  Receipt Date: 20070309
  Transmission Date: 20080405
  Serious: No
  Sender: FDA-Public Use
  Company Number: A0639542A

PATIENT
  Age: 81 Year
  Sex: Female

DRUGS (7)
  1. COREG [Suspect]
     Dosage: 3.125MG TWICE PER DAY
     Route: 048
  2. FUROSEMIDE [Concomitant]
  3. AVAPRO [Concomitant]
  4. PLAVIX [Concomitant]
  5. ACIPHEX [Concomitant]
  6. M.V.I. [Concomitant]
  7. MYOCALCINNS [Concomitant]

REACTIONS (6)
  - DEHYDRATION [None]
  - DIARRHOEA [None]
  - DRY MOUTH [None]
  - DYSKINESIA [None]
  - MIDDLE INSOMNIA [None]
  - VOMITING [None]
